FAERS Safety Report 12419449 (Version 2)
Quarter: 2016Q2

REPORT INFORMATION
  Report Type: Other
  Country: JP (occurrence: JP)
  Receive Date: 20160531
  Receipt Date: 20160613
  Transmission Date: 20160815
  Serious: No
  Sender: FDA-Public Use
  Company Number: JP-LUPIN PHARMACEUTICALS INC.-2016-01985

PATIENT
  Sex: Female

DRUGS (3)
  1. OMEPRAZOLE 20 MG TABLET (AMEL) [Suspect]
     Active Substance: OMEPRAZOLE
     Indication: GASTROOESOPHAGEAL REFLUX DISEASE
     Route: 048
     Dates: start: 20140204, end: 20150519
  2. ZETIA [Concomitant]
     Active Substance: EZETIMIBE
     Indication: HYPERTENSION
     Route: 048
     Dates: start: 201303, end: 201602
  3. SORENTMIN [Concomitant]
     Active Substance: BROTIZOLAM
     Indication: INSOMNIA
     Route: 048

REACTIONS (3)
  - Aspartate aminotransferase increased [None]
  - Blood alkaline phosphatase increased [None]
  - Dysgeusia [Recovered/Resolved]

NARRATIVE: CASE EVENT DATE: 201503
